FAERS Safety Report 5814474-2 (Version None)
Quarter: 2008Q3

REPORT INFORMATION
  Report Type: 
  Country: None (occurrence: None)
  Receive Date: 20080718
  Receipt Date: 20080715
  Transmission Date: 20090109
  Serious: Yes (Hospitalization, Other)
  Sender: FDA-Public Use
  Company Number: US-BRISTOL-MYERS SQUIBB COMPANY-14264014

PATIENT
  Age: 87 Year
  Sex: Female
  Weight: 63 kg

DRUGS (14)
  1. WARFARIN SODIUM [Suspect]
     Dosage: HELD ON UNKNOWN DATE AND RESTARTED AFTER 3 DAYS
  2. ENBREL [Suspect]
     Indication: RHEUMATOID ARTHRITIS
     Dosage: HELD ON UNKNOWN DATE AND RESTARTED AFTER 3 DAYS
     Route: 058
     Dates: start: 20061110
  3. PROCRIT [Suspect]
     Route: 058
  4. LEFLUNOMIDE [Concomitant]
     Route: 065
  5. PREDNISONE TAB [Concomitant]
     Route: 065
  6. LEVOTHYROXINE SODIUM [Concomitant]
     Route: 065
  7. IRON DEXTRAN [Concomitant]
     Route: 065
  8. POTASSIUM CHLORIDE [Concomitant]
     Route: 065
  9. FLUVASTATIN SODIUM [Concomitant]
     Route: 065
  10. ALENDRONATE SODIUM [Concomitant]
     Route: 065
  11. CARVEDILOL [Concomitant]
     Route: 065
  12. FUROSEMIDE [Concomitant]
     Route: 065
  13. FOLIC ACID [Concomitant]
     Route: 065
  14. FLAVOCOXID [Concomitant]

REACTIONS (18)
  - ACTIVATED PARTIAL THROMBOPLASTIN TIME PROLONGED [None]
  - ANTICOAGULATION DRUG LEVEL ABOVE THERAPEUTIC [None]
  - ARTHRALGIA [None]
  - COUGH [None]
  - FATIGUE [None]
  - FOOT OPERATION [None]
  - GASTROENTERITIS VIRAL [None]
  - GASTROINTESTINAL HAEMORRHAGE [None]
  - HAEMOGLOBIN DECREASED [None]
  - INTERNATIONAL NORMALISED RATIO INCREASED [None]
  - MALAISE [None]
  - MEDIASTINAL MASS [None]
  - NOCTURIA [None]
  - POLYURIA [None]
  - PROTHROMBIN TIME PROLONGED [None]
  - RESPIRATORY TRACT CONGESTION [None]
  - SYNOVITIS [None]
  - THYROID FUNCTION TEST ABNORMAL [None]
